FAERS Safety Report 23349423 (Version 2)
Quarter: 2024Q1

REPORT INFORMATION
  Report Type: Spontaneous
  Country: NL (occurrence: NL)
  Receive Date: 20231229
  Receipt Date: 20240112
  Transmission Date: 20240409
  Serious: Yes (Other)
  Sender: FDA-Public Use
  Company Number: None

PATIENT
  Age: 27 Year
  Sex: Female
  Weight: 53 kg

DRUGS (1)
  1. MOMETASONE FUROATE [Suspect]
     Active Substance: MOMETASONE FUROATE
     Indication: Perioral dermatitis
     Dosage: MOMETASON ZALF 1MG/G (MILLIGRAM PER GRAM), 2 TIMES PER DAY FACE; MEDICATION PRESCRIBED BY PHYSICIAN:
     Route: 065
     Dates: start: 20220301, end: 20220711

REACTIONS (9)
  - Pruritus [Not Recovered/Not Resolved]
  - Skin burning sensation [Not Recovered/Not Resolved]
  - Erythema [Not Recovered/Not Resolved]
  - Papule [Not Recovered/Not Resolved]
  - Topical steroid withdrawal reaction [Not Recovered/Not Resolved]
  - Wound [Not Recovered/Not Resolved]
  - Skin weeping [Not Recovered/Not Resolved]
  - Dermatitis exfoliative generalised [Not Recovered/Not Resolved]
  - Staphylococcal infection [Not Recovered/Not Resolved]
